FAERS Safety Report 6775070-6 (Version None)
Quarter: 2010Q2

REPORT INFORMATION
  Report Type: 
  Country: None (occurrence: None)
  Receive Date: 20100617
  Receipt Date: 20100609
  Transmission Date: 20101027
  Serious: Yes (Hospitalization, Disabling)
  Sender: FDA-Public Use
  Company Number: B0657864A

PATIENT
  Sex: Female

DRUGS (7)
  1. VALTREX [Suspect]
     Indication: HERPES ZOSTER
     Dosage: 3000MG PER DAY
     Route: 048
     Dates: start: 20100519
  2. CRAVIT [Concomitant]
     Dosage: 500MG PER DAY
     Route: 048
     Dates: start: 20100522, end: 20100523
  3. UNKNOWN DRUG [Concomitant]
     Route: 065
     Dates: start: 20100523
  4. NORVASC [Concomitant]
     Indication: HYPERTENSION
     Dosage: 5MG PER DAY
     Route: 048
     Dates: start: 20100426
  5. PROMAC [Concomitant]
     Indication: GASTRITIS
     Dosage: 150MG PER DAY
     Route: 048
     Dates: start: 20100426
  6. MAGMITT [Concomitant]
     Indication: CONSTIPATION
     Dosage: 500MG PER DAY
     Route: 048
     Dates: start: 20100426
  7. HEPARIN SODIUM [Concomitant]
     Indication: THROMBOSIS
     Dates: start: 20100426

REACTIONS (2)
  - PYREXIA [None]
  - RENAL FAILURE ACUTE [None]
